FAERS Safety Report 10063670 (Version 2)
Quarter: 2014Q2

REPORT INFORMATION
  Report Type: Report from Study
  Country: BR (occurrence: BR)
  Receive Date: 20140407
  Receipt Date: 20140505
  Transmission Date: 20141212
  Serious: Yes (Other)
  Sender: FDA-Public Use
  Company Number: PHHY2014BR040718

PATIENT
  Sex: Male
  Weight: 72 kg

DRUGS (11)
  1. EXELON PATCH [Suspect]
     Indication: MEMORY IMPAIRMENT
     Dosage: 4.5 MG, DAILY (ONE 9 MG/5 CM2 PATCH, DAILY)
     Route: 062
     Dates: start: 2013
  2. EXELON PATCH [Suspect]
     Indication: MULTIPLE SCLEROSIS
     Dosage: 4.5 MG, DAILY (ONE 9 MG/5 CM2 PATCH, DAILY)
     Route: 062
  3. PRADAXA [Concomitant]
     Indication: INFARCTION
     Dosage: 2 DF, DAILY
     Route: 048
     Dates: start: 201212
  4. PRADAXA [Concomitant]
     Indication: CARDIOVASCULAR DISORDER
  5. MICARDIS HCT [Concomitant]
     Indication: HYPERTENSION
     Dosage: 1 DF, DAILY
     Route: 048
  6. MONOCORDIL [Concomitant]
     Indication: HYPERTENSION
     Dosage: 2 DF, DAILY
     Route: 048
  7. OMEPRAZOLE [Concomitant]
     Indication: GASTRITIS
     Dosage: 1 DF, DAILY
     Route: 048
  8. ZETIA [Concomitant]
     Indication: BLOOD CHOLESTEROL ABNORMAL
     Dosage: 1 DF, DAILY
     Route: 048
  9. VYTORIN [Concomitant]
     Indication: BLOOD CHOLESTEROL ABNORMAL
     Dosage: 1 DF, DAILY
     Route: 048
     Dates: start: 201309
  10. RECONTER [Concomitant]
     Indication: DEPRESSION
     Dosage: 1 DF, DAILY
     Route: 048
  11. ATLANSIL//AMIODARONE HYDROCHLORIDE [Concomitant]
     Indication: ARRHYTHMIA
     Dosage: 1 DF, DAILY
     Route: 048

REACTIONS (3)
  - Cerebrovascular accident [Unknown]
  - Drug intolerance [Unknown]
  - Incorrect drug administration duration [Unknown]
